FAERS Safety Report 8690073 (Version 2)
Quarter: 2013Q2

REPORT INFORMATION
  Report Type: Spontaneous
  Country: US (occurrence: US)
  Receive Date: 20120727
  Receipt Date: 20130531
  Transmission Date: 20140414
  Serious: Yes (Hospitalization)
  Sender: FDA-Public Use
  Company Number: US-ASTRAZENECA-2012SE11793

PATIENT
  Age: 17417 Day
  Sex: Female
  Weight: 63.5 kg

DRUGS (10)
  1. SEROQUEL XR [Suspect]
     Indication: SLEEP DISORDER
     Route: 048
  2. SEROQUEL XR [Suspect]
     Indication: NERVOUS SYSTEM DISORDER
     Route: 048
  3. SEROQUEL XR [Suspect]
     Indication: DEPRESSION
     Route: 048
  4. SEROQUEL XR [Suspect]
     Indication: SLEEP DISORDER
     Route: 048
  5. SEROQUEL XR [Suspect]
     Indication: NERVOUS SYSTEM DISORDER
     Route: 048
  6. SEROQUEL XR [Suspect]
     Indication: DEPRESSION
     Route: 048
  7. BLOOD PRESSURE PILL [Concomitant]
     Indication: BLOOD PRESSURE ABNORMAL
  8. HEART PILL [Concomitant]
     Indication: CARDIAC DISORDER
  9. MUSCLE RELAXERS [Concomitant]
  10. ANTIDEPRESSANTS [Concomitant]

REACTIONS (4)
  - Intervertebral disc injury [Unknown]
  - Back disorder [Unknown]
  - Intentional drug misuse [Unknown]
  - Intentional drug misuse [Unknown]
